FAERS Safety Report 4507917-8 (Version None)
Quarter: 2004Q4

REPORT INFORMATION
  Report Type: 
  Country: None (occurrence: None)
  Receive Date: 20041123
  Receipt Date: 20041118
  Transmission Date: 20050328
  Serious: Yes (Other)
  Sender: FDA-Public Use
  Company Number: US-ROCHE-386800

PATIENT
  Age: 29 Year
  Sex: Female
  Weight: 66.2 kg

DRUGS (4)
  1. CELLCEPT [Suspect]
     Route: 048
     Dates: start: 19980915, end: 20031115
  2. PROGRAF [Concomitant]
     Route: 048
     Dates: start: 19980915
  3. PREDNISONE [Concomitant]
     Route: 048
     Dates: start: 19980915
  4. BACTRIM [Concomitant]
     Indication: PROPHYLAXIS
     Route: 048
     Dates: start: 20020615

REACTIONS (2)
  - DRUG EXPOSURE DURING PREGNANCY [None]
  - GESTATIONAL DIABETES [None]
